FAERS Safety Report 6823386-7 (Version None)
Quarter: 2010Q3

REPORT INFORMATION
  Report Type: 
  Country: None (occurrence: None)
  Receive Date: 20100708
  Receipt Date: 20100629
  Transmission Date: 20110219
  Serious: Yes (Other)
  Sender: FDA-Public Use
  Company Number: BR-PFIZER INC-2010080818

PATIENT
  Age: 73 Year
  Sex: Male
  Weight: 74 kg

DRUGS (7)
  1. XALATAN [Suspect]
     Indication: GLAUCOMA
     Dosage: 1.5 UG (1 DROP) IN EACH EYE
     Route: 047
     Dates: start: 20090101
  2. DOXAZOSIN [Suspect]
  3. METFORMIN [Concomitant]
     Indication: DIABETES MELLITUS
     Dosage: UNK
     Dates: start: 20070101
  4. VERAPAMIL - SLOW RELEASE [Concomitant]
     Indication: HYPERTENSION
     Dosage: 240 MG, UNK
  5. CO-RENITEC [Concomitant]
     Indication: HYPERTENSION
     Dosage: 20 / 12.5 MG
  6. SIMVASTATIN [Concomitant]
     Indication: BLOOD CHOLESTEROL NORMAL
     Dosage: 20 MG, UNK
  7. CARDURAN XL [Concomitant]
     Dosage: UNK
     Dates: start: 20070101

REACTIONS (5)
  - EYE PAIN [None]
  - MALAISE [None]
  - OCULAR HYPERAEMIA [None]
  - PULSE ABSENT [None]
  - SYNCOPE [None]
